FAERS Safety Report 22011641 (Version 2)
Quarter: 2023Q1

REPORT INFORMATION
  Report Type: Report from Study
  Country: TH (occurrence: TH)
  Receive Date: 20230220
  Receipt Date: 20230222
  Transmission Date: 20230418
  Serious: Yes (Other)
  Sender: FDA-Public Use
  Company Number: TH-002147023-NVSC2021TH215323

PATIENT
  Sex: Female

DRUGS (14)
  1. KISQALI [Suspect]
     Active Substance: RIBOCICLIB
     Indication: Breast cancer metastatic
     Dosage: UNK
     Route: 065
  2. KISQALI [Suspect]
     Active Substance: RIBOCICLIB
     Dosage: 3 DOSAGE FORM, QD (IN THE MORNING - TAKING 3 WEEKS,SKIPPING 1 WEEK))
     Route: 048
  3. KISQALI [Suspect]
     Active Substance: RIBOCICLIB
     Dosage: 2 DOSAGE FORM, QD (AT BEDTIME-TAKING 3 WEEKS, SKIPPING 1 WEEK))
     Route: 048
  4. KISQALI [Suspect]
     Active Substance: RIBOCICLIB
     Dosage: 1 DOSAGE FORM, QD  (IN THE MORNING - TAKING 3 WEEKS, SKIPPING 1 WEEK)
     Route: 048
  5. KISQALI [Suspect]
     Active Substance: RIBOCICLIB
     Dosage: 1 DOSAGE FORM, QD (IN THE MORNING - TAKING 2 WEEKS, SKIPPING 1 WEEK)
     Route: 048
  6. KISQALI [Suspect]
     Active Substance: RIBOCICLIB
     Dosage: 1 DOSAGE FORM, QD (AT THE MORNING - TAKING 3 WEEKS, SKIPPING 1 WEEK)
     Route: 048
  7. FEMARA [Suspect]
     Active Substance: LETROZOLE
     Indication: Product used for unknown indication
     Dosage: 1 DOSAGE FORM, QD (AFTER BREAKFAST, IN THE MORNING (13-MAY-2021, 22-JUN-2021)
     Route: 065
  8. LETOV [Concomitant]
     Indication: Product used for unknown indication
     Dosage: 1 DOSAGE FORM, QD (AFTER BREAKFAST, Y IN THE MORNING (27-APR-2021, 02-NOV-2021, 28-DEC-2021, 01-MAR-
     Route: 065
  9. CALTAB [Concomitant]
     Indication: Product used for unknown indication
     Dosage: 1 DOSAGE FORM, QD (AFTER BREAKFAST,IN THE MORNING (27-APR-2021, 13-MAY-2021, 22-JUN-2021, 02-NOV-202
     Route: 065
  10. ERGOCALCIFEROL [Concomitant]
     Active Substance: ERGOCALCIFEROL
     Indication: Product used for unknown indication
     Dosage: 1 DOSAGE FORM, QW (AFTER BREAKFAST ONCE WEEKLY, 27-APR-2021, 13-MAY-2021, 22-JUN-2021, 02-NOV-2021,
     Route: 065
  11. MOLAX-M [Concomitant]
     Indication: Product used for unknown indication
     Dosage: 10 MG, TID (BEFORE BREAKFAST, LUNCH, AND DINNER)
     Route: 065
     Dates: start: 20210622
  12. ZOLENNIC [Concomitant]
     Indication: Product used for unknown indication
     Dosage: 4 MG, 5ML MG, 5ML IV, 4 MG (27-APR-2021, 02-NOV-2021, 01-MAR-2022, 21-JUN-2022, 20-SEP-2022)
     Route: 042
  13. ACETAMINOPHEN [Concomitant]
     Active Substance: ACETAMINOPHEN
     Indication: Pain
     Dosage: 10 MG, PRN (EVERY 4-6  HOURS, (02-NOV-2021, 01-MAR-2022, 21-JUN-2022, 20-SEP-2022)
     Route: 065
  14. ACETAMINOPHEN [Concomitant]
     Active Substance: ACETAMINOPHEN
     Indication: Pyrexia

REACTIONS (4)
  - Renal impairment [Unknown]
  - Decreased appetite [Unknown]
  - Vomiting [Unknown]
  - Inappropriate schedule of product administration [Unknown]
